FAERS Safety Report 21077942 (Version 3)
Quarter: 2022Q3

REPORT INFORMATION
  Report Type: Spontaneous
  Country: CN (occurrence: CN)
  Receive Date: 20220713
  Receipt Date: 20220728
  Transmission Date: 20221026
  Serious: Yes (Hospitalization, Other)
  Sender: FDA-Public Use
  Company Number: CN-SANOFI-01105734

PATIENT
  Age: 69 Year
  Sex: Female

DRUGS (7)
  1. LANTUS [Suspect]
     Active Substance: INSULIN GLARGINE
     Indication: Hyperglycaemia
     Dosage: 20 IU, QD
     Route: 058
     Dates: start: 20220215
  2. LANTUS [Suspect]
     Active Substance: INSULIN GLARGINE
     Dosage: 6 IU, QD
     Route: 058
  3. LANTUS [Suspect]
     Active Substance: INSULIN GLARGINE
     Dosage: 10 IU, QD
     Dates: start: 20220630, end: 20220702
  4. LANTUS [Suspect]
     Active Substance: INSULIN GLARGINE
     Dosage: 12 IU, QD
     Route: 058
     Dates: start: 20220702
  5. LANTUS [Suspect]
     Active Substance: INSULIN GLARGINE
     Dosage: 10 IU, QD
     Dates: start: 20220705
  6. GLIPIZIDE [Concomitant]
     Active Substance: GLIPIZIDE
  7. ACARBOSE [Concomitant]
     Active Substance: ACARBOSE

REACTIONS (10)
  - Cerebrovascular disorder [Recovering/Resolving]
  - Tinnitus [Recovering/Resolving]
  - Deafness [Recovering/Resolving]
  - Diabetes mellitus inadequate control [Recovering/Resolving]
  - Drug dependence [Unknown]
  - Vulvovaginal pruritus [Recovered/Resolved]
  - Blood glucose decreased [Unknown]
  - Blood glucose increased [Recovering/Resolving]
  - Blood glucose abnormal [Recovering/Resolving]
  - Drug ineffective [Unknown]

NARRATIVE: CASE EVENT DATE: 20220630
